FAERS Safety Report 25854323 (Version 2)
Quarter: 2025Q4

REPORT INFORMATION
  Report Type: Spontaneous
  Country: EU (occurrence: EU)
  Receive Date: 20250927
  Receipt Date: 20251009
  Transmission Date: 20260118
  Serious: Yes (Hospitalization)
  Sender: ABBVIE
  Company Number: EU-AMGEN-GRCSP2025186653

PATIENT
  Age: 27 Year
  Sex: Female

DRUGS (1)
  1. ADALIMUMAB [Suspect]
     Active Substance: ADALIMUMAB
     Indication: Psoriatic arthropathy
     Route: 058

REACTIONS (5)
  - Acquired left ventricle outflow tract obstruction [Unknown]
  - Pleuritic pain [Unknown]
  - Mitral valve incompetence [Unknown]
  - Syncope [Unknown]
  - Pericardial cyst [Unknown]
